FAERS Safety Report 21451170 (Version 1)
Quarter: 2022Q4

REPORT INFORMATION
  Report Type: Report from Study
  Country: FR (occurrence: FR)
  Receive Date: 20221013
  Receipt Date: 20221013
  Transmission Date: 20230113
  Serious: Yes (Hospitalization, Other)
  Sender: FDA-Public Use
  Company Number: None

PATIENT

DRUGS (5)
  1. VALACYCLOVIR HYDROCHLORIDE [Suspect]
     Active Substance: VALACYCLOVIR HYDROCHLORIDE
     Indication: Prophylaxis
     Dosage: 2 DF, QD (DAILY DOSE: 1 DU 2X/DAY)
     Route: 048
     Dates: end: 201209
  2. NOXAFIL [Suspect]
     Active Substance: POSACONAZOLE
     Indication: Prophylaxis
     Dosage: 3 DF, QD (DOSE 1 DU 3X/DAY)
     Route: 048
     Dates: start: 201209, end: 201209
  3. BACTRIM [Suspect]
     Active Substance: SULFAMETHOXAZOLE\TRIMETHOPRIM
     Indication: Prophylaxis
     Dosage: 1 DF, WE (DOSE-1DU, 3X/WEEK)
     Route: 048
     Dates: end: 201209
  4. CAMPATH [Suspect]
     Active Substance: ALEMTUZUMAB
     Indication: Chronic lymphocytic leukaemia
     Dosage: UNK
     Route: 042
     Dates: start: 201206, end: 201209
  5. KARDEGIC [Concomitant]
     Active Substance: ASPIRIN DL-LYSINE
     Indication: Product used for unknown indication
     Dosage: 75 MG, QD
     Route: 048

REACTIONS (10)
  - Drug reaction with eosinophilia and systemic symptoms [Recovered/Resolved]
  - Rash [Recovered/Resolved]
  - Pruritus [Recovered/Resolved]
  - Skin exfoliation [Recovered/Resolved]
  - Lymphadenopathy [Recovered/Resolved]
  - Oedema peripheral [Recovered/Resolved]
  - Pharyngeal oedema [Recovered/Resolved]
  - Eosinophilia [Recovered/Resolved]
  - Scratch [Recovered/Resolved]
  - Eczema [Unknown]

NARRATIVE: CASE EVENT DATE: 20120901
